FAERS Safety Report 12537335 (Version 1)
Quarter: 2016Q3

REPORT INFORMATION
  Report Type: Spontaneous
  Country: US (occurrence: US)
  Receive Date: 20160707
  Receipt Date: 20160707
  Transmission Date: 20161109
  Serious: Yes (Hospitalization)
  Sender: FDA-Public Use
  Company Number: US-ASTRAZENECA-2016SE71768

PATIENT
  Age: 66 Year
  Sex: Female

DRUGS (2)
  1. VITAMIN SUPPLEMENTS [Concomitant]
     Active Substance: VITAMINS
  2. LYNPARZA [Suspect]
     Active Substance: OLAPARIB
     Indication: OVARIAN CANCER RECURRENT
     Route: 048
     Dates: start: 201511, end: 20160628

REACTIONS (3)
  - Skin necrosis [Not Recovered/Not Resolved]
  - Hernia [Not Recovered/Not Resolved]
  - Wound dehiscence [Not Recovered/Not Resolved]
